FAERS Safety Report 21706264 (Version 1)
Quarter: 2022Q4

REPORT INFORMATION
  Report Type: Spontaneous
  Country: US (occurrence: None)
  Receive Date: 20221208
  Receipt Date: 20221208
  Transmission Date: 20230113
  Serious: Yes (Other)
  Sender: FDA-Public Use
  Company Number: None

PATIENT
  Age: 62 Year
  Sex: Male
  Weight: 83.25 kg

DRUGS (2)
  1. NAPROXEN SODIUM [Suspect]
     Active Substance: NAPROXEN SODIUM
     Indication: Product used for unknown indication
     Dosage: FREQUENCY : AS NEEDED;?
     Route: 048
     Dates: start: 20221207, end: 20221208
  2. Ubrelvy 10mg [Concomitant]
     Dates: start: 20221207, end: 20221207

REACTIONS (7)
  - Expired product administered [None]
  - Abdominal pain [None]
  - Abdominal pain [None]
  - Muscle spasms [None]
  - Nausea [None]
  - Constipation [None]
  - Rectal haemorrhage [None]

NARRATIVE: CASE EVENT DATE: 20221207
